FAERS Safety Report 17030976 (Version 1)
Quarter: 2019Q4

REPORT INFORMATION
  Report Type: Spontaneous
  Country: FR (occurrence: FR)
  Receive Date: 20191114
  Receipt Date: 20191114
  Transmission Date: 20200122
  Serious: Yes (Life-Threatening)
  Sender: FDA-Public Use
  Company Number: FR-ELI_LILLY_AND_COMPANY-14894885

PATIENT
  Age: 65 Year
  Sex: Female
  Weight: 50 kg

DRUGS (1)
  1. ERBITUX [Suspect]
     Active Substance: CETUXIMAB
     Indication: HEAD AND NECK CANCER
     Dosage: 250 MG/M2, UNKNOWN
     Route: 042
     Dates: start: 20090923, end: 20090923

REACTIONS (5)
  - Hypotension [Recovered/Resolved]
  - Anal incontinence [Recovered/Resolved]
  - Loss of consciousness [Recovered/Resolved]
  - Skin reaction [Recovered/Resolved]
  - Salivary hypersecretion [Recovered/Resolved]

NARRATIVE: CASE EVENT DATE: 20090923
